FAERS Safety Report 5320850-7 (Version None)
Quarter: 2007Q2

REPORT INFORMATION
  Report Type: 
  Country: None (occurrence: None)
  Receive Date: 20070509
  Receipt Date: 20070507
  Transmission Date: 20071010
  Serious: Yes (Death)
  Sender: FDA-Public Use
  Company Number: JP-GENENTECH-241055

PATIENT
  Age: 57 Year
  Sex: Female

DRUGS (1)
  1. ACTIVASE [Suspect]
     Indication: CEREBRAL INFARCTION
     Dosage: 18.5 ML, SINGLE
     Route: 042
     Dates: start: 20070406, end: 20070406

REACTIONS (1)
  - SHOCK [None]
